FAERS Safety Report 14156129 (Version 5)
Quarter: 2019Q3

REPORT INFORMATION
  Report Type: Report from Study
  Country: IE (occurrence: IE)
  Receive Date: 20171103
  Receipt Date: 20190709
  Transmission Date: 20191004
  Serious: Yes (Hospitalization, Other)
  Sender: FDA-Public Use
  Company Number: PHHY2017IE156803

PATIENT
  Age: 43 Year
  Sex: Male

DRUGS (2)
  1. VOTRIENT [Suspect]
     Active Substance: PAZOPANIB HYDROCHLORIDE
     Indication: RENAL CANCER METASTATIC
     Dosage: 600 MG, UNK
     Route: 048
     Dates: start: 20170724
  2. VOTRIENT [Suspect]
     Active Substance: PAZOPANIB HYDROCHLORIDE
     Dosage: 600 MG, UNK
     Route: 065

REACTIONS (44)
  - Brain neoplasm malignant [Not Recovered/Not Resolved]
  - Metastases to bone [Unknown]
  - Serum ferritin increased [Recovering/Resolving]
  - Mean cell haemoglobin concentration increased [Recovered/Resolved]
  - Pain [Recovering/Resolving]
  - Upper respiratory tract infection [Unknown]
  - Cough [Unknown]
  - Blood bilirubin increased [Unknown]
  - Vision blurred [Unknown]
  - Protein total decreased [Not Recovered/Not Resolved]
  - High density lipoprotein increased [Recovering/Resolving]
  - Red blood cell sedimentation rate increased [Unknown]
  - Red cell distribution width increased [Unknown]
  - Blood magnesium decreased [Recovered/Resolved]
  - Intestinal perforation [Recovered/Resolved]
  - Metastases to spleen [Unknown]
  - Bone pain [Unknown]
  - Loss of consciousness [Unknown]
  - Viral myocarditis [Unknown]
  - Blood glucose increased [Unknown]
  - Muscle spasms [Unknown]
  - Diverticulitis [Recovering/Resolving]
  - Wound infection [Recovering/Resolving]
  - Renal cancer metastatic [Unknown]
  - Malignant neoplasm progression [Unknown]
  - Red cell distribution width decreased [Unknown]
  - Platelet count decreased [Unknown]
  - Pyrexia [Recovering/Resolving]
  - Nasal congestion [Unknown]
  - Abdominal pain [Recovered/Resolved]
  - Low density lipoprotein increased [Recovering/Resolving]
  - Viral pharyngitis [Unknown]
  - Blood potassium increased [Unknown]
  - Second primary malignancy [Not Recovered/Not Resolved]
  - Meningitis [Unknown]
  - Blood count abnormal [Not Recovered/Not Resolved]
  - Loss of consciousness [Recovered/Resolved]
  - Optic nerve compression [Unknown]
  - Metastases to lung [Unknown]
  - Red blood cell sedimentation rate increased [Recovered/Resolved]
  - Anxiety [Unknown]
  - Sinusitis [Unknown]
  - Upper-airway cough syndrome [Unknown]
  - Blood bilirubin increased [Recovered/Resolved]

NARRATIVE: CASE EVENT DATE: 20171020
